FAERS Safety Report 25549113 (Version 1)
Quarter: 2025Q3

REPORT INFORMATION
  Report Type: Spontaneous
  Country: GB (occurrence: GB)
  Receive Date: 20250714
  Receipt Date: 20250714
  Transmission Date: 20251021
  Serious: Yes (Hospitalization, Other)
  Sender: GALPHARM INTERNATIONAL
  Company Number: None

PATIENT
  Age: 44 Year
  Sex: Male

DRUGS (4)
  1. ACETAMINOPHEN [Suspect]
     Active Substance: ACETAMINOPHEN
     Indication: Product used for unknown indication
     Route: 065
  2. MORPHINE SULFATE [Concomitant]
     Active Substance: MORPHINE SULFATE
     Indication: Product used for unknown indication
     Route: 065
  3. MORPHINE SULFATE [Concomitant]
     Active Substance: MORPHINE SULFATE
     Indication: Product used for unknown indication
     Route: 065
  4. MORPHINE SULFATE [Concomitant]
     Active Substance: MORPHINE SULFATE
     Route: 065

REACTIONS (3)
  - Jaundice [Recovered/Resolved]
  - Liver function test abnormal [Recovered/Resolved]
  - Hyperbilirubinaemia [Recovered/Resolved]
